FAERS Safety Report 25828336 (Version 1)
Quarter: 2025Q3

REPORT INFORMATION
  Report Type: Spontaneous
  Country: US (occurrence: US)
  Receive Date: 20250921
  Receipt Date: 20250921
  Transmission Date: 20251020
  Serious: No
  Sender: TAKEDA
  Company Number: US-TAKEDA-2025TUS081200

PATIENT
  Age: 56 Year
  Sex: Female

DRUGS (2)
  1. HYQVIA [Suspect]
     Active Substance: HUMAN IMMUNOGLOBULIN G\HYALURONIDASE (HUMAN RECOMBINANT)
     Indication: Product used for unknown indication
     Dosage: 45 GRAM, MONTHLY
     Dates: start: 20250915
  2. HYQVIA [Suspect]
     Active Substance: HUMAN IMMUNOGLOBULIN G\HYALURONIDASE (HUMAN RECOMBINANT)
     Dosage: 45 GRAM, MONTHLY

REACTIONS (5)
  - Abdominal distension [Unknown]
  - Infusion site warmth [Unknown]
  - Infusion site pruritus [Unknown]
  - Infusion site erythema [Unknown]
  - Infusion site swelling [Unknown]
